FAERS Safety Report 9201008 (Version 1)
Quarter: 2013Q1

REPORT INFORMATION
  Report Type: Spontaneous
  Country: US (occurrence: None)
  Receive Date: 20130327
  Receipt Date: 20130327
  Transmission Date: 20140127
  Serious: Yes (Hospitalization)
  Sender: FDA-Public Use
  Company Number: 2013SUN00380

PATIENT
  Age: 79 Year
  Sex: Female

DRUGS (5)
  1. MIRTAZAPINE [Suspect]
     Indication: DEPRESSION
  2. MIRTAZAPINE [Suspect]
     Indication: ANXIETY
  3. DONEPEZIL HYDROCHLORIDE [Suspect]
     Indication: DEPRESSION
  4. DONEPEZIL HYDROCHLORIDE [Suspect]
     Indication: ANXIETY
  5. ESZOPICLONE (ESZOPICLONE) [Concomitant]

REACTIONS (3)
  - Encephalopathy [None]
  - Acute psychosis [None]
  - Depression [None]
